FAERS Safety Report 15549162 (Version 1)
Quarter: 2018Q4

REPORT INFORMATION
  Report Type: Report from Study
  Country: None (occurrence: US)
  Receive Date: 20181025
  Receipt Date: 20181025
  Transmission Date: 20190205
  Serious: Yes (Other)
  Sender: FDA-Public Use
  Company Number: US-ABBVIE-18K-163-2530778-00

PATIENT
  Sex: Female

DRUGS (1)
  1. HUMIRA [Suspect]
     Active Substance: ADALIMUMAB
     Indication: CROHN^S DISEASE
     Route: 058

REACTIONS (5)
  - Abscess [Recovered/Resolved]
  - Obstruction [Recovered/Resolved]
  - Small intestinal resection [Recovered/Resolved]
  - Sepsis [Recovered/Resolved]
  - Wound [Recovered/Resolved]
